FAERS Safety Report 18460328 (Version 2)
Quarter: 2020Q4

REPORT INFORMATION
  Report Type: Report from Study
  Country: US (occurrence: US)
  Receive Date: 20201104
  Receipt Date: 20201215
  Transmission Date: 20210114
  Serious: No
  Sender: FDA-Public Use
  Company Number: US-SA-2020SA309739

PATIENT

DRUGS (5)
  1. DUPILUMAB [Suspect]
     Active Substance: DUPILUMAB
     Indication: ASTHMA
     Dosage: 400 MG, 1X
     Route: 058
     Dates: start: 20201125, end: 20201125
  2. CEFTIN [CEFTRIAXONE] [Concomitant]
     Active Substance: CEFTRIAXONE
     Dosage: UNK
     Route: 065
  3. TETRACYCLINE HCL [Concomitant]
     Active Substance: TETRACYCLINE HYDROCHLORIDE
     Dosage: UNK
     Route: 065
  4. DUPILUMAB [Suspect]
     Active Substance: DUPILUMAB
     Dosage: 200 MG, QOW
     Route: 058
     Dates: start: 2020
  5. GABAPENTIN. [Concomitant]
     Active Substance: GABAPENTIN
     Dosage: UNK
     Route: 065

REACTIONS (15)
  - Ear discomfort [Unknown]
  - Wheezing [Unknown]
  - Sinus disorder [Unknown]
  - Rhinorrhoea [Unknown]
  - Condition aggravated [Unknown]
  - Facial pain [Unknown]
  - Hyposmia [Recovered/Resolved]
  - Hypogeusia [Unknown]
  - Upper-airway cough syndrome [Unknown]
  - Nasal polyps [Unknown]
  - Sneezing [Unknown]
  - Dyspnoea [Unknown]
  - Chest discomfort [Unknown]
  - Ear pain [Unknown]
  - Cough [Unknown]

NARRATIVE: CASE EVENT DATE: 202010
